FAERS Safety Report 8054172-0 (Version None)
Quarter: 2012Q1

REPORT INFORMATION
  Report Type: 
  Country: None (occurrence: None)
  Receive Date: 20120118
  Receipt Date: 20120112
  Transmission Date: 20120608
  Serious: Yes (Hospitalization)
  Sender: FDA-Public Use
  Company Number: RS-PFIZER INC-2011314646

PATIENT
  Age: 69 Year
  Sex: Female

DRUGS (8)
  1. ORVAGIL [Concomitant]
     Indication: PSEUDOMEMBRANOUS COLITIS
     Dosage: 400 MG, 3X/DAY
     Dates: start: 20111129, end: 20111130
  2. SULFASALAZINE [Suspect]
     Indication: PSEUDOMEMBRANOUS COLITIS
     Dosage: 500 MG, 3X/DAY
     Route: 048
     Dates: start: 20111129, end: 20111130
  3. RANISAN [Concomitant]
     Dosage: UNK
     Route: 048
     Dates: start: 20111115
  4. PROBIOTICS [Concomitant]
     Dosage: UNK
  5. LORAZEPAM [Concomitant]
     Dosage: 1 MG, 2X/DAY
  6. METOPROLOL [Concomitant]
     Dosage: UNK
     Route: 048
     Dates: start: 20111115
  7. ACETAMINOPHEN [Concomitant]
     Dosage: 500 MG, AS NEEDED
     Dates: start: 20111115
  8. LEVOFLOXACIN [Concomitant]
     Dosage: 500 MG/24H
     Route: 051
     Dates: start: 20111127, end: 20111130

REACTIONS (7)
  - VULVOVAGINAL PAIN [None]
  - MUCOUS MEMBRANE DISORDER [None]
  - VAGINAL OEDEMA [None]
  - VAGINAL DISORDER [None]
  - VULVOVAGINAL BURNING SENSATION [None]
  - VAGINAL EXFOLIATION [None]
  - RASH VESICULAR [None]
